FAERS Safety Report 25612961 (Version 1)
Quarter: 2025Q3

REPORT INFORMATION
  Report Type: Spontaneous
  Country: EU (occurrence: EU)
  Receive Date: 20250728
  Receipt Date: 20250728
  Transmission Date: 20251021
  Serious: Yes (Hospitalization, Other)
  Sender: SCIEGEN PHARMACEUTICALS INC
  Company Number: EU-SCIEGENP-2025SCLIT00183

PATIENT
  Age: 74 Year
  Sex: Male

DRUGS (8)
  1. QUETIAPINE [Suspect]
     Active Substance: QUETIAPINE
     Indication: Depression
     Route: 065
  2. QUETIAPINE [Suspect]
     Active Substance: QUETIAPINE
     Indication: Psychotic symptom
  3. QUETIAPINE [Suspect]
     Active Substance: QUETIAPINE
     Indication: Suicidal ideation
  4. AMISULPRIDE [Suspect]
     Active Substance: AMISULPRIDE
     Indication: Depression
     Route: 065
  5. AMISULPRIDE [Suspect]
     Active Substance: AMISULPRIDE
     Indication: Psychotic symptom
  6. AMISULPRIDE [Suspect]
     Active Substance: AMISULPRIDE
     Indication: Suicidal ideation
  7. ETOMIDATE [Concomitant]
     Active Substance: ETOMIDATE
     Indication: Anaesthesia
     Route: 065
  8. Suxamethonium-chloride [Concomitant]
     Indication: Anaesthesia
     Route: 065

REACTIONS (2)
  - Atrial fibrillation [Recovered/Resolved]
  - Stress [Recovered/Resolved]
